FAERS Safety Report 7212399-1 (Version None)
Quarter: 2011Q1

REPORT INFORMATION
  Report Type: 
  Country: None (occurrence: None)
  Receive Date: 20110106
  Receipt Date: 20101209
  Transmission Date: 20110831
  Serious: Yes (Hospitalization)
  Sender: FDA-Public Use
  Company Number: IT-SANOFI-AVENTIS-2011SA000375

PATIENT
  Age: 74 Year
  Sex: Male
  Weight: 90 kg

DRUGS (5)
  1. DOCETAXEL [Suspect]
     Indication: PROSTATE CANCER
     Route: 041
     Dates: start: 20101028, end: 20101028
  2. DOCETAXEL [Suspect]
     Route: 041
     Dates: start: 20101118, end: 20101118
  3. INVESTIGATIONAL DRUG [Suspect]
     Indication: PROSTATE CANCER
     Route: 048
     Dates: start: 20101028, end: 20101118
  4. COUMADIN [Concomitant]
     Route: 048
     Dates: end: 20101119
  5. PREDNISONE [Suspect]
     Indication: PROSTATE CANCER
     Dates: start: 20101028, end: 20101118

REACTIONS (2)
  - ANAL ULCER [None]
  - ANAL HAEMORRHAGE [None]
